FAERS Safety Report 12183552 (Version 1)
Quarter: 2016Q1

REPORT INFORMATION
  Report Type: Spontaneous
  Country: US (occurrence: None)
  Receive Date: 20160315
  Receipt Date: 20160315
  Transmission Date: 20160526
  Serious: Yes (Life-Threatening)
  Sender: FDA-Public Use
  Company Number: None

PATIENT
  Age: 65 Year
  Sex: Male
  Weight: 56.7 kg

DRUGS (6)
  1. DOCQLACE [Suspect]
     Active Substance: DOCUSATE SODIUM
     Indication: CONSTIPATION
     Route: 048
     Dates: start: 20160229, end: 20160301
  2. HYDROCODONE ACETAMINOPHEN GENERIC FOR NORCO [Suspect]
     Active Substance: ACETAMINOPHEN\HYDROCODONE
  3. DOCQLACE [Suspect]
     Active Substance: DOCUSATE SODIUM
     Indication: WEIGHT CONTROL
     Route: 048
     Dates: start: 20160229, end: 20160301
  4. DOCQLACE [Suspect]
     Active Substance: DOCUSATE SODIUM
     Indication: SLEEP DISORDER
     Route: 048
     Dates: start: 20160229, end: 20160301
  5. DOCQLACE [Suspect]
     Active Substance: DOCUSATE SODIUM
     Indication: DIARRHOEA
     Route: 048
     Dates: start: 20160229, end: 20160301
  6. DOCQLACE [Suspect]
     Active Substance: DOCUSATE SODIUM
     Indication: PAIN
     Route: 048
     Dates: start: 20160229, end: 20160301

REACTIONS (2)
  - Violence-related symptom [None]
  - Anger [None]

NARRATIVE: CASE EVENT DATE: 20160229
